FAERS Safety Report 23038074 (Version 1)
Quarter: 2023Q4

REPORT INFORMATION
  Report Type: Spontaneous
  Country: GB (occurrence: GB)
  Receive Date: 20231006
  Receipt Date: 20231006
  Transmission Date: 20240110
  Serious: Yes (Life-Threatening, Other)
  Sender: FDA-Public Use
  Company Number: None

PATIENT
  Age: 43 Year
  Sex: Female
  Weight: 91 kg

DRUGS (10)
  1. TRAMADOL [Suspect]
     Active Substance: TRAMADOL\TRAMADOL HYDROCHLORIDE
     Indication: Product used for unknown indication
     Route: 048
  2. ALBUTEROL [Concomitant]
     Active Substance: ALBUTEROL
     Indication: Product used for unknown indication
     Dosage: 100MICROGRAMS/DOSE. 1 TO 2 PUFFS UP...
     Route: 055
     Dates: start: 20230731
  3. LUFORBEC [Concomitant]
     Indication: Product used for unknown indication
     Dosage: 100MICROGRAMS/DOSE / 6MICROGRAMS/DOSE. 2 PUFFS TWICE A,
     Route: 055
     Dates: start: 20230731
  4. FLUTICASONE FUROATE [Concomitant]
     Active Substance: FLUTICASONE FUROATE
     Indication: Product used for unknown indication
     Dosage: 27.5MICROGRAMS/DOSE,
     Route: 045
     Dates: start: 20230601
  5. AMITRIPTYLINE [Concomitant]
     Active Substance: AMITRIPTYLINE
     Indication: Product used for unknown indication
     Dosage: 1 DOSAGE FORMS DAILY; 50MG OR 25MG TABLETS. EVERY NIGHT
     Dates: start: 20230731
  6. MIRTAZAPINE [Concomitant]
     Active Substance: MIRTAZAPINE
     Indication: Product used for unknown indication
     Dates: start: 20230731
  7. CODEINE [Concomitant]
     Active Substance: CODEINE
     Indication: Product used for unknown indication
     Dosage: 1 TO 2 TABLETS
     Dates: start: 20230822
  8. FEXOFENADINE [Concomitant]
     Active Substance: FEXOFENADINE HYDROCHLORIDE
     Indication: Product used for unknown indication
     Dates: start: 20230601
  9. METHYLPREDNISOLONE [Concomitant]
     Active Substance: METHYLPREDNISOLONE
     Indication: Product used for unknown indication
     Dosage: METHYLPREDNISOLONE 40MG/1ML / LIDOCAINE 10MG/1ML (1%). 1ML USED
     Dates: start: 20230815
  10. LIDOCAINE [Concomitant]
     Active Substance: LIDOCAINE
     Indication: Product used for unknown indication
     Dosage: METHYLPREDNISOLONE 40MG/1ML / LIDOCAINE 10MG/1ML (1%). 1ML USED
     Dates: start: 20230815

REACTIONS (1)
  - Seizure [Recovered/Resolved]

NARRATIVE: CASE EVENT DATE: 20230720
